FAERS Safety Report 24411445 (Version 1)
Quarter: 2024Q4

REPORT INFORMATION
  Report Type: Spontaneous
  Country: LK (occurrence: LK)
  Receive Date: 20241008
  Receipt Date: 20241008
  Transmission Date: 20250115
  Serious: Yes (Death, Other)
  Sender: Alora Pharma
  Company Number: LK-OSMOTICA PHARMACEUTICALS-2024ALO00478

PATIENT
  Age: 6 Decade
  Sex: Male

DRUGS (1)
  1. NIFEDIPINE [Suspect]
     Active Substance: NIFEDIPINE

REACTIONS (2)
  - Toxicity to various agents [Fatal]
  - Trismus [Unknown]
